FAERS Safety Report 5326021-2 (Version None)
Quarter: 2007Q2

REPORT INFORMATION
  Report Type: 
  Country: None (occurrence: None)
  Receive Date: 20070514
  Receipt Date: 20070514
  Transmission Date: 20071010
  Serious: Yes (Disabling)
  Sender: FDA-Public Use
  Company Number: None

PATIENT
  Age: 87 Year
  Sex: Female
  Weight: 59 kg

DRUGS (5)
  1. LOVENOX [Suspect]
     Indication: ANTICOAGULANT THERAPY
     Dosage: 60MG Q12H SC
     Route: 058
     Dates: start: 20070419, end: 20070421
  2. LOVENOX [Suspect]
     Indication: ATRIAL FIBRILLATION
     Dosage: 60MG Q12H SC
     Route: 058
     Dates: start: 20070419, end: 20070421
  3. LOVENOX [Suspect]
  4. COUMADIN [Suspect]
     Indication: ANTICOAGULANT THERAPY
     Dosage: 5MG DAILY PO
     Route: 048
     Dates: start: 20070416, end: 20070421
  5. COUMADIN [Suspect]
     Indication: ATRIAL FIBRILLATION
     Dosage: 5MG DAILY PO
     Route: 048
     Dates: start: 20070416, end: 20070421

REACTIONS (4)
  - ASTHENIA [None]
  - PARAPLEGIA [None]
  - SPINAL HAEMATOMA [None]
  - SUBDURAL HAEMATOMA [None]
